FAERS Safety Report 8586324-5 (Version None)
Quarter: 2012Q3

REPORT INFORMATION
  Report Type: 
  Country: None (occurrence: None)
  Receive Date: 20120730
  Receipt Date: 20120716
  Transmission Date: 20120928
  Serious: Yes (Hospitalization)
  Sender: FDA-Public Use
  Company Number: 218017

PATIENT
  Age: 70 Year
  Sex: Female

DRUGS (6)
  1. CALCIPOTRIENE AND BETAMETHASONE DIPROPIONATE [Suspect]
     Indication: PSORIASIS
     Dosage: MORE THAN RECOMMENDED (EVERY OTHER DAY),TOPICAL, (1 IN 2 D),TOPICAL
     Route: 061
     Dates: start: 20120501
  2. CALCIPOTRIENE AND BETAMETHASONE DIPROPIONATE [Suspect]
     Indication: PSORIASIS
     Dosage: MORE THAN RECOMMENDED (EVERY OTHER DAY),TOPICAL, (1 IN 2 D),TOPICAL
     Route: 061
     Dates: start: 20120501
  3. CLOBETASOL PROPIONATE [Concomitant]
  4. UREA (UREA) [Concomitant]
  5. PREDNISONE TAB [Concomitant]
  6. EXCIPIAL (UREA) [Concomitant]

REACTIONS (4)
  - SKIN ATROPHY [None]
  - DRUG INTOLERANCE [None]
  - HAEMATOMA [None]
  - INCORRECT DOSE ADMINISTERED [None]
